FAERS Safety Report 8187685-1 (Version None)
Quarter: 2012Q1

REPORT INFORMATION
  Report Type: 
  Country: None (occurrence: None)
  Receive Date: 20120306
  Receipt Date: 20120301
  Transmission Date: 20120608
  Serious: Yes (Other)
  Sender: FDA-Public Use
  Company Number: US-ABBOTT-12P-163-0910783-00

PATIENT
  Sex: Female
  Weight: 59.02 kg

DRUGS (7)
  1. LUTEIN [Concomitant]
     Indication: PRODUCT USED FOR UNKNOWN INDICATION
  2. LISINOPRIL [Suspect]
     Indication: CARDIAC FAILURE
     Dates: start: 20120101, end: 20120207
  3. VITAMIN D [Concomitant]
     Indication: VITAMIN SUPPLEMENTATION
  4. PLAQUENIL [Concomitant]
     Indication: PSORIATIC ARTHROPATHY
  5. MOBIC [Concomitant]
     Indication: PSORIATIC ARTHROPATHY
  6. CALCIUM [Concomitant]
     Indication: MINERAL SUPPLEMENTATION
  7. HUMIRA [Suspect]
     Indication: PSORIATIC ARTHROPATHY
     Dates: start: 20100824, end: 20120106

REACTIONS (6)
  - AORTIC VALVE INCOMPETENCE [None]
  - CARDIAC FAILURE [None]
  - CARDIAC MURMUR [None]
  - ECHOCARDIOGRAM ABNORMAL [None]
  - BLOOD POTASSIUM INCREASED [None]
  - AORTIC CALCIFICATION [None]
